FAERS Safety Report 4790169-1 (Version None)
Quarter: 2005Q4

REPORT INFORMATION
  Report Type: 
  Country: None (occurrence: None)
  Receive Date: 20051005
  Receipt Date: 20051005
  Transmission Date: 20060501
  Serious: Yes (Hospitalization)
  Sender: FDA-Public Use
  Company Number: None

PATIENT
  Age: 55 Year
  Sex: Male

DRUGS (7)
  1. ENALAPRIL MALEATE AND HYDROCHLOROTHIAZIDE [Suspect]
     Indication: HYPERTENSION
     Dosage: 1 TAB ONCE DAILY
     Dates: end: 20040913
  2. GLIPIZIDE [Concomitant]
  3. ATORVASTATIN [Concomitant]
  4. POTASSIUM CHLORIDE [Concomitant]
  5. MULTI-VITAMIN [Concomitant]
  6. FLECAINIDE ACETATE [Concomitant]
  7. LATANOPROST DROPS [Concomitant]

REACTIONS (1)
  - SWELLING FACE [None]
